FAERS Safety Report 7943776 (Version 19)
Quarter: 2014Q3

REPORT INFORMATION
  Report Type: Spontaneous
  Country: US (occurrence: US)
  Receive Date: 20110513
  Receipt Date: 20140808
  Transmission Date: 20150326
  Serious: Yes (Other)
  Sender: FDA-Public Use
  Company Number: PHEH2011US00481

PATIENT
  Sex: Female
  Weight: 72.56 kg

DRUGS (5)
  1. THALIDOMIDE [Concomitant]
     Active Substance: THALIDOMIDE
  2. ZOFRAN [Concomitant]
     Active Substance: ONDANSETRON HYDROCHLORIDE
     Dosage: 8 MG, UNK
  3. DECADRON [Concomitant]
     Active Substance: DEXAMETHASONE
  4. BENICAR HCT [Concomitant]
     Active Substance: HYDROCHLOROTHIAZIDE\OLMESARTAN MEDOXOMIL
  5. ZOMETA [Suspect]
     Active Substance: ZOLEDRONIC ACID
     Indication: PLASMA CELL MYELOMA
     Route: 042
     Dates: end: 2007

REACTIONS (126)
  - Pain [Unknown]
  - Infection [Unknown]
  - Anxiety [Unknown]
  - Catheter site haemorrhage [Unknown]
  - Spondylolisthesis [Unknown]
  - Perineurial cyst [Unknown]
  - Swelling face [Unknown]
  - Cervical spinal stenosis [Unknown]
  - Exostosis [Unknown]
  - Intervertebral disc degeneration [Unknown]
  - Sciatica [Unknown]
  - Tympanic membrane hyperaemia [Unknown]
  - Rhinitis allergic [Unknown]
  - Pharyngitis [Unknown]
  - Pharyngeal erythema [Unknown]
  - Sensitivity of teeth [Unknown]
  - Neuropathy peripheral [Unknown]
  - Vertigo [Unknown]
  - Dyspepsia [Unknown]
  - Sinus headache [Unknown]
  - Ear discomfort [Unknown]
  - Flushing [Unknown]
  - Chills [Unknown]
  - Abdominal pain upper [Unknown]
  - Deformity [Unknown]
  - Venous injury [Unknown]
  - Sinusitis [Unknown]
  - Bone disorder [Unknown]
  - Rales [Unknown]
  - Osteolysis [Unknown]
  - Dental caries [Unknown]
  - Glucose tolerance impaired [Unknown]
  - Local swelling [Unknown]
  - Pelvic pain [Unknown]
  - Pain in extremity [Unknown]
  - Generalised erythema [Unknown]
  - Dermatitis [Unknown]
  - Dizziness [Unknown]
  - Ocular hyperaemia [Unknown]
  - Diarrhoea [Unknown]
  - Alopecia [Unknown]
  - Abdominal pain lower [Unknown]
  - Metastases to bone [Unknown]
  - Tobacco abuse [Unknown]
  - Arthritis [Unknown]
  - Intervertebral disc space narrowing [Unknown]
  - Nasal congestion [Unknown]
  - Tooth disorder [Unknown]
  - Bone marrow oedema [Unknown]
  - Osteosclerosis [Unknown]
  - Spinal cord compression [Unknown]
  - Haematuria [Unknown]
  - Anaemia [Unknown]
  - Otitis media [Unknown]
  - Urinary incontinence [Unknown]
  - Paraesthesia [Unknown]
  - Physical disability [Unknown]
  - Tooth fracture [Unknown]
  - Purulent discharge [Unknown]
  - Spinal osteoarthritis [Unknown]
  - Joint effusion [Unknown]
  - Pain in jaw [Unknown]
  - Nephrolithiasis [Unknown]
  - Insomnia [Unknown]
  - Chest pain [Unknown]
  - Fibrocystic breast disease [Unknown]
  - Tympanic membrane disorder [Unknown]
  - Syncope [Unknown]
  - Magnesium metabolism disorder [Unknown]
  - Tachycardia [Unknown]
  - Rotator cuff syndrome [Unknown]
  - Lipase increased [Unknown]
  - Burning sensation [Unknown]
  - Stomatitis [Unknown]
  - Vomiting [Unknown]
  - Hiccups [Unknown]
  - Glossodynia [Unknown]
  - Dysphagia [Unknown]
  - Hypertension [Unknown]
  - Facial pain [Unknown]
  - Bone swelling [Unknown]
  - Back pain [Unknown]
  - Kidney infection [Unknown]
  - Bronchitis [Unknown]
  - Chest discomfort [Unknown]
  - Ecchymosis [Unknown]
  - Contusion [Unknown]
  - Gastrooesophageal reflux disease [Unknown]
  - Joint swelling [Unknown]
  - Ligament sprain [Unknown]
  - Arthralgia [Unknown]
  - Rash [Unknown]
  - Ear pain [Unknown]
  - Cough [Unknown]
  - Osteonecrosis of jaw [Unknown]
  - Gingival inflammation [Unknown]
  - Gingival pain [Unknown]
  - Upper respiratory tract infection [Unknown]
  - Pneumonia [Unknown]
  - Fall [Unknown]
  - Intervertebral disc protrusion [Unknown]
  - Oropharyngeal pain [Unknown]
  - Muscle spasms [Unknown]
  - Tongue coated [Unknown]
  - Injury [Unknown]
  - Tooth abscess [Unknown]
  - Neutropenia [Unknown]
  - Nasal septum deviation [Unknown]
  - Lumbar radiculopathy [Unknown]
  - Hypoalbuminaemia [Unknown]
  - Musculoskeletal discomfort [Unknown]
  - Musculoskeletal pain [Unknown]
  - Metastases to bone marrow [Unknown]
  - Diabetes mellitus [Unknown]
  - Bone lesion [Unknown]
  - Urinary tract infection [Unknown]
  - Thyroid neoplasm [Unknown]
  - Rib fracture [Unknown]
  - Depression [Unknown]
  - Pleuritic pain [Unknown]
  - Neck pain [Unknown]
  - Fatigue [Unknown]
  - Pyrexia [Unknown]
  - Oral pain [Unknown]
  - Oral mucosal erythema [Unknown]
  - Tenderness [Unknown]
